FAERS Safety Report 25950676 (Version 1)
Quarter: 2025Q4

REPORT INFORMATION
  Report Type: Spontaneous
  Country: US (occurrence: US)
  Receive Date: 20251023
  Receipt Date: 20251023
  Transmission Date: 20260118
  Serious: No
  Sender: BAUSCH AND LOMB
  Company Number: US-BAUSCHBL-2025BNL030383

PATIENT
  Age: 68 Year
  Sex: Female

DRUGS (1)
  1. XIIDRA [Suspect]
     Active Substance: LIFITEGRAST
     Indication: Product used for unknown indication
     Dosage: ONCE A DAY AND SOMETIMES SHE USES IT TWICE A DAY.
     Route: 047

REACTIONS (5)
  - Upper-airway cough syndrome [Unknown]
  - Throat irritation [Unknown]
  - Chest discomfort [Unknown]
  - Eye irritation [Recovered/Resolved]
  - Inappropriate schedule of product administration [Unknown]
